FAERS Safety Report 22130364 (Version 1)
Quarter: 2023Q1

REPORT INFORMATION
  Report Type: Spontaneous
  Country: US (occurrence: US)
  Receive Date: 20230323
  Receipt Date: 20230323
  Transmission Date: 20230417
  Serious: No
  Sender: FDA-Public Use
  Company Number: US-MSNLABS-2023MSNSPO00409

PATIENT

DRUGS (5)
  1. ROFLUMILAST [Suspect]
     Active Substance: ROFLUMILAST
     Indication: Asthma
     Route: 048
  2. ROFLUMILAST [Suspect]
     Active Substance: ROFLUMILAST
     Indication: Dyspnoea
  3. BREO ELLIPTA [Concomitant]
     Active Substance: FLUTICASONE FUROATE\VILANTEROL TRIFENATATE
     Indication: Product used for unknown indication
     Route: 065
  4. SPIRIVA [Concomitant]
     Active Substance: TIOTROPIUM BROMIDE MONOHYDRATE
     Indication: Product used for unknown indication
     Route: 065
  5. Albuterol Spray [Concomitant]
     Indication: Product used for unknown indication
     Route: 065

REACTIONS (3)
  - Peripheral swelling [Not Recovered/Not Resolved]
  - Diarrhoea [Not Recovered/Not Resolved]
  - Initial insomnia [Not Recovered/Not Resolved]
